FAERS Safety Report 7263465-6 (Version None)
Quarter: 2011Q1

REPORT INFORMATION
  Report Type: 
  Country: None (occurrence: None)
  Receive Date: 20110130
  Receipt Date: 20101203
  Transmission Date: 20110831
  Serious: No
  Sender: FDA-Public Use
  Company Number: US-ABBOTT-10P-163-0689337-00

PATIENT
  Sex: Male
  Weight: 88.53 kg

DRUGS (5)
  1. COD LIVER OIL [Concomitant]
     Indication: VITAMIN SUPPLEMENTATION
     Route: 048
  2. CLOBETASOL [Concomitant]
     Indication: PSORIASIS
     Route: 061
  3. FLAX SEED [Concomitant]
     Indication: VITAMIN SUPPLEMENTATION
     Route: 048
  4. MULTI-VITAMIN [Concomitant]
     Indication: VITAMIN SUPPLEMENTATION
     Route: 048
  5. HUMIRA [Suspect]
     Indication: PSORIASIS
     Route: 058
     Dates: start: 20091218, end: 20101201

REACTIONS (2)
  - WHITE BLOOD CELL COUNT INCREASED [None]
  - RENAL FUNCTION TEST ABNORMAL [None]
